FAERS Safety Report 5286336-3 (Version None)
Quarter: 2007Q2

REPORT INFORMATION
  Report Type: 
  Country: None (occurrence: None)
  Receive Date: 20070404
  Receipt Date: 20070330
  Transmission Date: 20071010
  Serious: Yes (Death, Disabling)
  Sender: FDA-Public Use
  Company Number: 2006UW21578

PATIENT
  Sex: Male

DRUGS (1)
  1. SEROQUEL [Suspect]
     Indication: POST-TRAUMATIC STRESS DISORDER
     Route: 048

REACTIONS (2)
  - DEATH [None]
  - DIABETES MELLITUS [None]
